FAERS Safety Report 8248042-2 (Version None)
Quarter: 2012Q1

REPORT INFORMATION
  Report Type: 
  Country: None (occurrence: None)
  Receive Date: 20120330
  Receipt Date: 20120316
  Transmission Date: 20120608
  Serious: Yes (Death, Hospitalization)
  Sender: FDA-Public Use
  Company Number: FR-ROCHE-1050096

PATIENT
  Sex: Female
  Weight: 115 kg

DRUGS (5)
  1. PROGRAF [Concomitant]
     Route: 048
  2. ASPIRIN [Concomitant]
     Route: 048
  3. PREDNISONE TAB [Concomitant]
     Route: 048
  4. MABTHERA [Suspect]
     Indication: MYASTHENIA GRAVIS
     Route: 042
     Dates: start: 20100909, end: 20100929
  5. MABTHERA [Suspect]
     Route: 042
     Dates: start: 20101014, end: 20101014

REACTIONS (11)
  - DYSPNOEA [None]
  - PRODUCTIVE COUGH [None]
  - CHILLS [None]
  - CORONARY ARTERY DISEASE [None]
  - ORTHOPNOEA [None]
  - ATELECTASIS [None]
  - FATIGUE [None]
  - EXTUBATION [None]
  - BRONCHIAL OBSTRUCTION [None]
  - PLEURAL EFFUSION [None]
  - CARDIO-RESPIRATORY ARREST [None]
